FAERS Safety Report 10517015 (Version 1)
Quarter: 2014Q4

REPORT INFORMATION
  Report Type: Spontaneous
  Country: US (occurrence: None)
  Receive Date: 20141003
  Receipt Date: 20141003
  Transmission Date: 20150528
  Serious: Yes (Hospitalization)
  Sender: FDA-Public Use
  Company Number: 1308153

PATIENT
  Age: 67 Year
  Sex: Female

DRUGS (3)
  1. PEGASYS [Suspect]
     Active Substance: PEGINTERFERON ALFA-2A
     Indication: CHRONIC HEPATITIS C
     Dosage: (PROCLICK AUTOINJECTOR)
     Dates: start: 20130927
  2. INCIVEK [Suspect]
     Active Substance: TELAPREVIR
     Indication: CHRONIC HEPATITIS C
     Dosage: 2500 MG (750 MG, 3 IN 1 D), UNKNOWN
     Route: 048
     Dates: start: 20130927
  3. RIBASPHERE [Suspect]
     Active Substance: RIBAVIRIN
     Indication: CHRONIC HEPATITIS C
     Dosage: DIVIDED DOSES 600 / 400 (DAILY), ORAL
     Route: 048
     Dates: start: 20130927

REACTIONS (2)
  - Anaemia [None]
  - Pruritus generalised [None]
